FAERS Safety Report 18200387 (Version 5)
Quarter: 2021Q1

REPORT INFORMATION
  Report Type: Other
  Country: US (occurrence: US)
  Receive Date: 20200827
  Receipt Date: 20210304
  Transmission Date: 20210419
  Serious: Yes (Other)
  Sender: FDA-Public Use
  Company Number: US-ROCHE-2426806

PATIENT
  Age: 91 Year
  Sex: Female
  Weight: 66.28 kg

DRUGS (23)
  1. RITUXAN [Suspect]
     Active Substance: RITUXIMAB
     Indication: PEMPHIGOID
     Route: 065
     Dates: start: 201910
  2. RITUXAN [Suspect]
     Active Substance: RITUXIMAB
     Indication: PEMPHIGOID
     Dosage: INFUSE 100 MG EVERY TWO WEEKS FOR TWO DOSES
     Route: 042
     Dates: start: 201910
  3. ERYTHROMYCIN. [Concomitant]
     Active Substance: ERYTHROMYCIN
     Dosage: APPLY 0.25 INCHES RIBBON TO EACH EYE AT BEDTIME. APPLY TO EYELID.
     Route: 047
  4. LOTEMAX [Concomitant]
     Active Substance: LOTEPREDNOL ETABONATE
     Dosage: APPLY 1 APPLICATION TO AFFECTED EYES 2 TIMES A DAY, IN TO THE LEFT EYE
  5. MOXIFLOXACIN HCL [Concomitant]
     Active Substance: MOXIFLOXACIN
     Dosage: PLACE 1 DROP INTO RIGHT EYE 4 TIMES A DAY
  6. SIMVASTATIN. [Concomitant]
     Active Substance: SIMVASTATIN
  7. METHYLPREDNISOLONE. [Concomitant]
     Active Substance: METHYLPREDNISOLONE
  8. NATAMYCIN [Concomitant]
     Active Substance: NATAMYCIN
     Dosage: INSTILL ONE DROP INTO RIGHT EYE 4 TIMES DAILY
  9. RITUXAN [Suspect]
     Active Substance: RITUXIMAB
     Route: 065
  10. METOPROLOL. [Concomitant]
     Active Substance: METOPROLOL
     Indication: HYPERTENSION
     Route: 048
  11. HYPROMELLOSE [Concomitant]
     Active Substance: HYPROMELLOSES
     Dosage: PLACE 1 DROP IN EACH EYE 4 TIMES A DAY AS NEEDED FOR DRY EYES
  12. METOPROLOL TARTRATE. [Concomitant]
     Active Substance: METOPROLOL TARTRATE
     Dosage: 2 TIMES A DAY
     Route: 048
  13. LEVOTHYROXINE. [Concomitant]
     Active Substance: LEVOTHYROXINE
     Route: 048
  14. OFLOXACIN. [Concomitant]
     Active Substance: OFLOXACIN
     Dosage: PLACE 1 DROP INTO THE LEFT EYE 4 TIMES A DAY
  15. TOBRAMYCIN AND DEXAMETHASONE [Concomitant]
     Active Substance: DEXAMETHASONE\TOBRAMYCIN
     Dosage: APPLY 0.5 APPLICATION RIBBON TO EYE 3 TIMES A DAY
  16. TRIAMCINOLONE [Concomitant]
     Active Substance: TRIAMCINOLONE
     Dosage: APPLY TO AFFECTED AREA ON SCALP 3 TIMES A DAY AS NEEDED.
  17. CELLCEPT [Suspect]
     Active Substance: MYCOPHENOLATE MOFETIL\MYCOPHENOLATE MOFETIL HYDROCHLORIDE
     Indication: PEMPHIGOID
     Dosage: 2 TAB BY MOUTH 2 TIMES A DAY
     Route: 048
  18. ACETAMINOPHEN. [Concomitant]
     Active Substance: ACETAMINOPHEN
     Route: 048
  19. DIPHENHYDRAMINE. [Concomitant]
     Active Substance: DIPHENHYDRAMINE
     Route: 048
  20. DEXTRAN 70;HYPROMELLOSE [Concomitant]
     Dosage: PLACE 1 DROP INTO EACH EYE 4 TIMES A DAY
  21. QUETIAPINE. [Concomitant]
     Active Substance: QUETIAPINE
     Dosage: TAKE 25 MG BY MOTH AT BEDTIME
     Route: 048
  22. AMLODIPINE [Concomitant]
     Active Substance: AMLODIPINE BESYLATE
     Indication: HYPERTENSION
     Route: 048
  23. LOSARTAN. [Concomitant]
     Active Substance: LOSARTAN
     Dosage: TAKE 100 MG BY MOUTH DAILY
     Route: 048

REACTIONS (27)
  - Dizziness [Not Recovered/Not Resolved]
  - Infection [Unknown]
  - Off label use [Unknown]
  - Abdominal pain upper [Unknown]
  - Mood swings [Unknown]
  - Pollakiuria [Unknown]
  - Eye infection [Not Recovered/Not Resolved]
  - Abdominal discomfort [Unknown]
  - Gastric disorder [Unknown]
  - Fatigue [Not Recovered/Not Resolved]
  - Eye pain [Recovered/Resolved]
  - Nausea [Unknown]
  - Diarrhoea [Unknown]
  - Corneal perforation [Unknown]
  - Immune system disorder [Unknown]
  - Feeling abnormal [Unknown]
  - Headache [Unknown]
  - Rash [Unknown]
  - Dizziness [Unknown]
  - Gastrooesophageal reflux disease [Unknown]
  - Blindness unilateral [Unknown]
  - Thirst [Not Recovered/Not Resolved]
  - Intentional product use issue [Unknown]
  - Confusional state [Not Recovered/Not Resolved]
  - Mood altered [Not Recovered/Not Resolved]
  - Dry eye [Unknown]
  - Insomnia [Unknown]

NARRATIVE: CASE EVENT DATE: 201910
